FAERS Safety Report 9647186 (Version 1)
Quarter: 2013Q4

REPORT INFORMATION
  Report Type: Spontaneous
  Country: US (occurrence: None)
  Receive Date: 20131024
  Receipt Date: 20131024
  Transmission Date: 20140711
  Serious: No
  Sender: FDA-Public Use
  Company Number: None

PATIENT
  Age: 64 Year
  Sex: Female
  Weight: 67.13 kg

DRUGS (1)
  1. LIVALO [Suspect]
     Indication: TYPE IIA HYPERLIPIDAEMIA
     Dosage: 1 PER DAY   ONCE DAILY
     Dates: start: 20131008, end: 20131022

REACTIONS (8)
  - Feeling abnormal [None]
  - Muscle spasms [None]
  - Pain [None]
  - Pain [None]
  - Headache [None]
  - Faecal incontinence [None]
  - Initial insomnia [None]
  - Lethargy [None]
